FAERS Safety Report 4546445-0 (Version None)
Quarter: 2005Q1

REPORT INFORMATION
  Report Type: 
  Country: None (occurrence: None)
  Receive Date: 20050103
  Receipt Date: 20041216
  Transmission Date: 20050727
  Serious: Yes (Death, Other)
  Sender: FDA-Public Use
  Company Number: CA_041207568

PATIENT
  Sex: Female

DRUGS (2)
  1. XIGRIS [Suspect]
  2. VASOPRESSORS [Concomitant]

REACTIONS (1)
  - SHOCK [None]
